FAERS Safety Report 25046720 (Version 1)
Quarter: 2025Q1

REPORT INFORMATION
  Report Type: Spontaneous
  Country: HR (occurrence: HR)
  Receive Date: 20250306
  Receipt Date: 20250306
  Transmission Date: 20250408
  Serious: Yes (Other)
  Sender: MYLAN
  Company Number: None

PATIENT
  Age: 55 Year
  Sex: Male

DRUGS (12)
  1. ATORVASTATIN [Suspect]
     Active Substance: ATORVASTATIN
     Indication: Product used for unknown indication
     Dosage: 4 DOSAGE FORM, QD (1 (DF): 1 TABLET)
     Dates: start: 20250115, end: 20250115
  2. ATORVASTATIN [Suspect]
     Active Substance: ATORVASTATIN
     Dosage: 4 DOSAGE FORM, QD (1 (DF): 1 TABLET)
     Route: 048
     Dates: start: 20250115, end: 20250115
  3. ATORVASTATIN [Suspect]
     Active Substance: ATORVASTATIN
     Dosage: 4 DOSAGE FORM, QD (1 (DF): 1 TABLET)
     Route: 048
     Dates: start: 20250115, end: 20250115
  4. ATORVASTATIN [Suspect]
     Active Substance: ATORVASTATIN
     Dosage: 4 DOSAGE FORM, QD (1 (DF): 1 TABLET)
     Dates: start: 20250115, end: 20250115
  5. RIVOTRIL [Suspect]
     Active Substance: CLONAZEPAM
     Indication: Product used for unknown indication
     Dosage: 20 MILLIGRAM, QD
     Dates: start: 20250115, end: 20250115
  6. RIVOTRIL [Suspect]
     Active Substance: CLONAZEPAM
     Dosage: 20 MILLIGRAM, QD
     Route: 048
     Dates: start: 20250115, end: 20250115
  7. RIVOTRIL [Suspect]
     Active Substance: CLONAZEPAM
     Dosage: 20 MILLIGRAM, QD
     Route: 048
     Dates: start: 20250115, end: 20250115
  8. RIVOTRIL [Suspect]
     Active Substance: CLONAZEPAM
     Dosage: 20 MILLIGRAM, QD
     Dates: start: 20250115, end: 20250115
  9. TICAGRELOR [Suspect]
     Active Substance: TICAGRELOR
     Indication: Product used for unknown indication
     Dosage: 540 MILLIGRAM, QD
     Dates: start: 20250115, end: 20250115
  10. TICAGRELOR [Suspect]
     Active Substance: TICAGRELOR
     Dosage: 540 MILLIGRAM, QD
     Route: 048
     Dates: start: 20250115, end: 20250115
  11. TICAGRELOR [Suspect]
     Active Substance: TICAGRELOR
     Dosage: 540 MILLIGRAM, QD
     Route: 048
     Dates: start: 20250115, end: 20250115
  12. TICAGRELOR [Suspect]
     Active Substance: TICAGRELOR
     Dosage: 540 MILLIGRAM, QD
     Dates: start: 20250115, end: 20250115

REACTIONS (5)
  - Suicide attempt [Unknown]
  - Oxygen saturation decreased [Unknown]
  - Somnolence [Unknown]
  - Alcohol abuse [Unknown]
  - Intentional overdose [Unknown]

NARRATIVE: CASE EVENT DATE: 20250115
